FAERS Safety Report 5520256-1 (Version None)
Quarter: 2007Q4

REPORT INFORMATION
  Report Type: 
  Country: None (occurrence: None)
  Receive Date: 20071117
  Receipt Date: 20071109
  Transmission Date: 20080405
  Serious: Yes (Hospitalization)
  Sender: FDA-Public Use
  Company Number: PHBS2007JP10030

PATIENT
  Age: 66 Year
  Sex: Female

DRUGS (2)
  1. FLUVASTATIN SODIUM [Suspect]
     Indication: HYPERLIPIDAEMIA
     Dosage: 30 MG/D
     Route: 048
     Dates: start: 20011117, end: 20011201
  2. FLUVASTATIN SODIUM [Suspect]
     Dates: start: 20011214, end: 20011215

REACTIONS (11)
  - ALANINE AMINOTRANSFERASE INCREASED [None]
  - ASPARTATE AMINOTRANSFERASE INCREASED [None]
  - BILIRUBIN CONJUGATED INCREASED [None]
  - BLOOD ALKALINE PHOSPHATASE INCREASED [None]
  - BLOOD BILIRUBIN INCREASED [None]
  - BLOOD LACTATE DEHYDROGENASE INCREASED [None]
  - C-REACTIVE PROTEIN INCREASED [None]
  - GAMMA-GLUTAMYLTRANSFERASE INCREASED [None]
  - JAUNDICE [None]
  - LIVER DISORDER [None]
  - PYREXIA [None]
